FAERS Safety Report 17044927 (Version 1)
Quarter: 2019Q4

REPORT INFORMATION
  Report Type: Spontaneous
  Country: FR (occurrence: FR)
  Receive Date: 20191118
  Receipt Date: 20191118
  Transmission Date: 20200122
  Serious: Yes (Life-Threatening, Hospitalization, Other)
  Sender: FDA-Public Use
  Company Number: FR-JNJFOC-20191116144

PATIENT
  Age: 33 Year
  Sex: Female

DRUGS (1)
  1. TRAMADOL/APAP [Suspect]
     Active Substance: ACETAMINOPHEN\TRAMADOL
     Indication: PRODUCT USED FOR UNKNOWN INDICATION
     Route: 048

REACTIONS (4)
  - Intentional overdose [Recovered/Resolved]
  - Hepatocellular injury [Recovered/Resolved]
  - Overdose [Not Recovered/Not Resolved]
  - Intentional product misuse [Not Recovered/Not Resolved]
